FAERS Safety Report 6076963-8 (Version None)
Quarter: 2009Q1

REPORT INFORMATION
  Report Type: 
  Country: None (occurrence: None)
  Receive Date: 20090213
  Receipt Date: 20090113
  Transmission Date: 20090719
  Serious: No
  Sender: FDA-Public Use
  Company Number: US-BAYER-200911051NA

PATIENT
  Age: 33 Year
  Sex: Female
  Weight: 54 kg

DRUGS (1)
  1. MIRENA [Suspect]
     Indication: CONTRACEPTION
     Route: 015
     Dates: start: 20081006, end: 20090102

REACTIONS (5)
  - ALOPECIA [None]
  - DIZZINESS [None]
  - DRY EYE [None]
  - LIBIDO DECREASED [None]
  - PARAESTHESIA [None]
